FAERS Safety Report 9381440 (Version 2)
Quarter: 2013Q3

REPORT INFORMATION
  Report Type: Spontaneous
  Country: US (occurrence: US)
  Receive Date: 20130703
  Receipt Date: 20130814
  Transmission Date: 20140515
  Serious: Yes (Other)
  Sender: FDA-Public Use
  Company Number: PHEH2013US013896

PATIENT
  Sex: Female

DRUGS (1)
  1. COMBIPATCH [Suspect]
     Dosage: 1 DF, BIW
     Route: 062

REACTIONS (4)
  - Loss of consciousness [Unknown]
  - Hot flush [Unknown]
  - Drug ineffective [Unknown]
  - Wrong technique in drug usage process [Unknown]
